FAERS Safety Report 6173655-1 (Version None)
Quarter: 2009Q2

REPORT INFORMATION
  Report Type: 
  Country: None (occurrence: None)
  Receive Date: 20090429
  Receipt Date: 20090429
  Transmission Date: 20091009
  Serious: No
  Sender: FDA-Public Use
  Company Number: None

PATIENT
  Age: 39 Year
  Sex: Male

DRUGS (2)
  1. ISONIAZID [Suspect]
     Indication: TUBERCULOSIS
     Dosage: 900 MG TWICE WEEKLY ORAL
     Route: 048
     Dates: start: 20090213, end: 20090313
  2. ISONIAZID [Suspect]
     Indication: TUBERCULOSIS
     Dosage: 900 MG TWICE WEEKLY ORAL
     Route: 048
     Dates: start: 20090320, end: 20090324

REACTIONS (2)
  - RASH [None]
  - URTICARIA [None]
